FAERS Safety Report 4872107-6 (Version None)
Quarter: 2005Q4

REPORT INFORMATION
  Report Type: 
  Country: None (occurrence: None)
  Receive Date: 20051230
  Receipt Date: 20051219
  Transmission Date: 20060501
  Serious: Yes (Hospitalization, Other)
  Sender: FDA-Public Use
  Company Number: 2005169988

PATIENT
  Sex: 0

DRUGS (5)
  1. LIPITOR [Suspect]
     Indication: ILL-DEFINED DISORDER
     Dosage: 40 MG (40 MG, 1 IN 1 D)
     Dates: start: 20050401, end: 20050501
  2. ASPIRIN [Suspect]
     Indication: ILL-DEFINED DISORDER
  3. AVELOX [Suspect]
     Indication: ILL-DEFINED DISORDER
  4. LOPRESSOR [Suspect]
     Indication: ILL-DEFINED DISORDER
  5. LASIX [Suspect]
     Indication: ILL-DEFINED DISORDER

REACTIONS (7)
  - ATRIAL FIBRILLATION [None]
  - BLOOD CHOLESTEROL INCREASED [None]
  - FEELING ABNORMAL [None]
  - HEART RATE IRREGULAR [None]
  - HIGH DENSITY LIPOPROTEIN DECREASED [None]
  - LOW DENSITY LIPOPROTEIN INCREASED [None]
  - PROSTATE CANCER [None]
